FAERS Safety Report 11271038 (Version 6)
Quarter: 2017Q3

REPORT INFORMATION
  Report Type: Spontaneous
  Country: PL (occurrence: PL)
  Receive Date: 20150714
  Receipt Date: 20170710
  Transmission Date: 20171127
  Serious: Yes (Other)
  Sender: FDA-Public Use
  Company Number: PL-ROCHE-1606729

PATIENT
  Age: 57 Year
  Sex: Female
  Weight: 50 kg

DRUGS (5)
  1. HERCEPTIN [Suspect]
     Active Substance: TRASTUZUMAB
     Indication: BREAST CANCER METASTATIC
     Dosage: 1ST CYCLE
     Route: 042
     Dates: start: 20141124
  2. DOCETAXEL. [Suspect]
     Active Substance: DOCETAXEL
     Indication: BREAST CANCER METASTATIC
     Dosage: 1ST CYCLE
     Route: 065
     Dates: start: 20141124
  3. PERJETA [Suspect]
     Active Substance: PERTUZUMAB
     Dosage: 33RD CYCLE OF IMMUNOTHERAPY
     Route: 042
     Dates: start: 20170601
  4. PERJETA [Suspect]
     Active Substance: PERTUZUMAB
     Indication: BREAST CANCER METASTATIC
     Dosage: 1ST CYCLE
     Route: 065
     Dates: start: 20141120
  5. HERCEPTIN [Suspect]
     Active Substance: TRASTUZUMAB
     Dosage: 38TH CYCLE OF IMMUNOTHERAPY
     Route: 042
     Dates: start: 20170601

REACTIONS (1)
  - Pulmonary fibrosis [Recovered/Resolved]

NARRATIVE: CASE EVENT DATE: 20150413
